FAERS Safety Report 6392466-5 (Version None)
Quarter: 2009Q4

REPORT INFORMATION
  Report Type: 
  Country: None (occurrence: None)
  Receive Date: 20091007
  Receipt Date: 20091006
  Transmission Date: 20100525
  Serious: Yes (Hospitalization, Other)
  Sender: FDA-Public Use
  Company Number: US-RB-020761-09

PATIENT
  Age: 35 Year
  Sex: Female

DRUGS (1)
  1. SUBOXONE [Suspect]
     Route: 060
     Dates: start: 20090601

REACTIONS (11)
  - BACK PAIN [None]
  - BALANCE DISORDER [None]
  - BLINDNESS [None]
  - BLOOD PRESSURE INCREASED [None]
  - CONVULSION [None]
  - DENTAL CARIES [None]
  - EPILEPSY [None]
  - FATIGUE [None]
  - GASTROENTERITIS PARACOLON BACILLUS [None]
  - MULTIPLE SCLEROSIS [None]
  - STRESS [None]
